FAERS Safety Report 15888270 (Version 1)
Quarter: 2019Q1

REPORT INFORMATION
  Report Type: Spontaneous
  Country: US (occurrence: US)
  Receive Date: 20190129
  Receipt Date: 20190129
  Transmission Date: 20190417
  Serious: Yes (Other)
  Sender: FDA-Public Use
  Company Number: None

PATIENT
  Age: 31 Year
  Sex: Female
  Weight: 54.43 kg

DRUGS (1)
  1. BUPRENORPHINE/NALOXONE, 8 MG [Suspect]
     Active Substance: BUPRENORPHINE\NALOXONE
     Indication: DRUG DEPENDENCE
     Dates: start: 20190115, end: 20190129

REACTIONS (4)
  - Product solubility abnormal [None]
  - Aptyalism [None]
  - Drug ineffective [None]
  - Drug dependence [None]

NARRATIVE: CASE EVENT DATE: 20190129
